FAERS Safety Report 5486975-0 (Version None)
Quarter: 2007Q4

REPORT INFORMATION
  Report Type: 
  Country: None (occurrence: None)
  Receive Date: 20071016
  Receipt Date: 20071003
  Transmission Date: 20080405
  Serious: Yes (Other)
  Sender: FDA-Public Use
  Company Number: GB-RANBAXY-2007RR-10516

PATIENT

DRUGS (10)
  1. OFLOXACIN 200MG TABLETS [Suspect]
     Indication: POSTOPERATIVE CARE
     Dosage: UNK
     Dates: start: 20070614
  2. CYCLOPENTOLATE HCL [Suspect]
     Indication: PREOPERATIVE CARE
     Dosage: UNK
     Dates: start: 20070614
  3. DEXAMETHASONE [Suspect]
     Indication: POSTOPERATIVE CARE
     Dosage: UNK
     Route: 047
     Dates: start: 20070614
  4. GLYCEROL 2.6% [Suspect]
     Indication: PREOPERATIVE CARE
     Dosage: UNK
     Dates: start: 20070614
  5. HYALURONATE SODIUM [Suspect]
     Indication: PERIOPERATIVE ANALGESIA
     Dosage: UNK
     Dates: start: 20070614
  6. LIDOCAINE [Suspect]
     Indication: PERIOPERATIVE ANALGESIA
     Dosage: UNK
     Dates: start: 20070614
  7. OCUFEN [Suspect]
     Indication: PREOPERATIVE CARE
     Dosage: UNK
     Route: 047
     Dates: start: 20070614
  8. PHENYLEPHRINE [Suspect]
     Indication: PREOPERATIVE CARE
     Dosage: UNK
     Dates: start: 20070614
  9. POVIDONE IODINE [Suspect]
     Indication: PREOPERATIVE CARE
     Dosage: UNK
     Dates: start: 20070614
  10. PROXYMETACAINE [Suspect]
     Indication: PERIOPERATIVE ANALGESIA
     Dosage: UNK
     Dates: start: 20070614

REACTIONS (1)
  - TOXIC ANTERIOR SEGMENT SYNDROME [None]
